FAERS Safety Report 23648644 (Version 3)
Quarter: 2025Q1

REPORT INFORMATION
  Report Type: Spontaneous
  Country: CA (occurrence: CA)
  Receive Date: 20240319
  Receipt Date: 20250225
  Transmission Date: 20250409
  Serious: Yes (Hospitalization, Other)
  Sender: GLAXOSMITHKLINE
  Company Number: CA-GLAXOSMITHKLINE-CA2024AMR032238

PATIENT

DRUGS (39)
  1. EPOPROSTENOL SODIUM [Suspect]
     Active Substance: EPOPROSTENOL SODIUM
     Indication: Pulmonary arterial hypertension
     Route: 042
  2. MACITENTAN [Suspect]
     Active Substance: MACITENTAN
     Indication: Pulmonary arterial hypertension
     Dosage: 10 MG, QD
     Route: 048
  3. SELEXIPAG [Suspect]
     Active Substance: SELEXIPAG
     Indication: Pulmonary arterial hypertension
     Dosage: 600 UG, Q5D
     Route: 048
  4. SELEXIPAG [Suspect]
     Active Substance: SELEXIPAG
     Dosage: 800 UG, Q5D
     Route: 048
  5. SELEXIPAG [Suspect]
     Active Substance: SELEXIPAG
     Route: 048
  6. SELEXIPAG [Suspect]
     Active Substance: SELEXIPAG
     Route: 048
  7. SELEXIPAG [Suspect]
     Active Substance: SELEXIPAG
     Route: 048
  8. SELEXIPAG [Suspect]
     Active Substance: SELEXIPAG
     Route: 048
  9. SELEXIPAG [Suspect]
     Active Substance: SELEXIPAG
     Route: 048
  10. SELEXIPAG [Suspect]
     Active Substance: SELEXIPAG
     Route: 048
  11. SELEXIPAG [Suspect]
     Active Substance: SELEXIPAG
     Route: 048
  12. SELEXIPAG [Suspect]
     Active Substance: SELEXIPAG
     Route: 048
  13. SELEXIPAG [Suspect]
     Active Substance: SELEXIPAG
     Route: 048
  14. SELEXIPAG [Suspect]
     Active Substance: SELEXIPAG
     Route: 048
  15. SELEXIPAG [Suspect]
     Active Substance: SELEXIPAG
     Route: 048
  16. SELEXIPAG [Suspect]
     Active Substance: SELEXIPAG
     Route: 048
  17. SELEXIPAG [Suspect]
     Active Substance: SELEXIPAG
     Route: 048
  18. SELEXIPAG [Suspect]
     Active Substance: SELEXIPAG
     Route: 048
  19. SELEXIPAG [Suspect]
     Active Substance: SELEXIPAG
     Route: 048
  20. ACETAMINOPHEN [Concomitant]
     Active Substance: ACETAMINOPHEN
     Indication: Pain
     Route: 048
  21. ADCIRCA [Concomitant]
     Active Substance: TADALAFIL
     Indication: Pulmonary arterial hypertension
     Route: 048
  22. CALCIUM CARBONATE [Concomitant]
     Active Substance: CALCIUM CARBONATE
     Indication: Dyspepsia
     Route: 048
  23. CIPROFLOXACIN [Concomitant]
     Active Substance: CIPROFLOXACIN
     Indication: Urinary tract infection
     Route: 048
  24. FUROSEMIDE [Concomitant]
     Active Substance: FUROSEMIDE
     Indication: Oedema
     Route: 048
  25. IRON [Concomitant]
     Active Substance: IRON
     Indication: Blood iron decreased
     Route: 048
  26. K DUR [Concomitant]
     Indication: Blood potassium decreased
     Route: 048
  27. METRONIDAZOLE [Concomitant]
     Active Substance: METRONIDAZOLE
     Indication: Infection
     Route: 048
  28. PANTOPRAZOLE [Concomitant]
     Active Substance: PANTOPRAZOLE
     Indication: Gastrooesophageal reflux disease
     Route: 048
  29. SENNOSIDES [Concomitant]
     Active Substance: SENNOSIDES
     Indication: Constipation
     Route: 048
  30. SERTRALINE HYDROCHLORIDE [Concomitant]
     Active Substance: SERTRALINE HYDROCHLORIDE
     Indication: Affective disorder
     Route: 048
  31. SPIRONOLACTONE [Concomitant]
     Active Substance: SPIRONOLACTONE
     Indication: Hypertension
     Route: 048
  32. SYNTHROID [Concomitant]
     Active Substance: LEVOTHYROXINE SODIUM
     Indication: Hypothyroidism
     Route: 048
  33. TINZAPARIN SODIUM [Concomitant]
     Active Substance: TINZAPARIN SODIUM
     Indication: Thrombosis
     Route: 058
  34. TYLENOL [Concomitant]
     Active Substance: ACETAMINOPHEN
     Indication: Pain
     Route: 048
  35. VITAMIN D3 [Concomitant]
     Active Substance: CHOLECALCIFEROL
     Indication: Routine health maintenance
     Route: 048
  36. ZOFRAN [Concomitant]
     Active Substance: ONDANSETRON HYDROCHLORIDE
     Indication: Nausea
     Route: 048
  37. LEVOTHYROXINE SODIUM [Concomitant]
     Active Substance: LEVOTHYROXINE SODIUM
     Indication: Hypothyroidism
     Route: 048
  38. POTASSIUM CHLORIDE [Concomitant]
     Active Substance: POTASSIUM CHLORIDE
     Indication: Hypokalaemia
     Route: 048
  39. TREPROSTINIL SODIUM [Concomitant]
     Active Substance: TREPROSTINIL SODIUM
     Indication: Pulmonary arterial hypertension
     Route: 042

REACTIONS (14)
  - Pulmonary arterial hypertension [Recovered/Resolved]
  - Oxygen therapy [Recovered/Resolved]
  - Pulmonary veno-occlusive disease [Recovered/Resolved]
  - Respiratory failure [Recovered/Resolved]
  - Seizure [Recovered/Resolved]
  - Wound infection [Recovered/Resolved]
  - Dizziness [Recovered/Resolved]
  - Cerebrovascular accident [Recovered/Resolved]
  - Dyspnoea [Recovered/Resolved]
  - Headache [Recovered/Resolved]
  - Lung transplant [Recovered/Resolved]
  - Renal impairment [Recovered/Resolved]
  - Pneumonia [Recovered/Resolved]
  - Pulmonary oedema [Recovered/Resolved]
